FAERS Safety Report 8078543-1 (Version None)
Quarter: 2012Q1

REPORT INFORMATION
  Report Type: 
  Country: None (occurrence: None)
  Receive Date: 20120127
  Receipt Date: 20110103
  Transmission Date: 20120608
  Serious: No
  Sender: FDA-Public Use
  Company Number: US-ABBOTT-11P-163-0694952-00

PATIENT
  Age: 52 Year
  Sex: Male

DRUGS (2)
  1. HUMIRA [Suspect]
     Indication: PSORIASIS
     Dates: start: 20110102
  2. PSORIASIS CREAM [Concomitant]
     Indication: PSORIASIS

REACTIONS (2)
  - HYPOAESTHESIA ORAL [None]
  - DRY MOUTH [None]
